FAERS Safety Report 9764674 (Version 1)
Quarter: 2013Q4

REPORT INFORMATION
  Report Type: Spontaneous
  Country: US (occurrence: None)
  Receive Date: 20131213
  Receipt Date: 20131213
  Transmission Date: 20140711
  Serious: Yes (Other)
  Sender: FDA-Public Use
  Company Number: 2013SA024081

PATIENT
  Age: 45 Year
  Sex: Female

DRUGS (2)
  1. ASPERCREME [Suspect]
     Indication: PRODUCT USED FOR UNKNOWN INDICATION
     Route: 061
     Dates: start: 20110818
  2. ASPERCREME [Concomitant]

REACTIONS (5)
  - Thermal burn [None]
  - Skin exfoliation [None]
  - Wound [None]
  - Lacrimation increased [None]
  - Multiple injuries [None]
